FAERS Safety Report 8970764 (Version 1)
Quarter: 2012Q4

REPORT INFORMATION
  Report Type: Report from Study
  Country: US (occurrence: US)
  Receive Date: 20121218
  Receipt Date: 20121218
  Transmission Date: 20130627
  Serious: Yes (Hospitalization)
  Sender: FDA-Public Use
  Company Number: US-009507513-1212USA004652

PATIENT
  Age: 61 Year
  Sex: Female
  Weight: 76.19 kg

DRUGS (7)
  1. TEMODAR [Suspect]
     Indication: GLIOBLASTOMA MULTIFORME
     Dosage: 130 mg, qd
     Route: 048
     Dates: start: 20090527, end: 20090701
  2. BEVACIZUMAB [Suspect]
     Indication: GLIOBLASTOMA MULTIFORME
     Dosage: 800 mg, q2w
     Route: 042
     Dates: start: 20090527, end: 20090625
  3. DECADRON (DEXAMETHASONE) [Concomitant]
     Dosage: 4 mg, UNK
     Route: 048
     Dates: start: 20090625
  4. PRILOSEC [Concomitant]
     Dosage: 20 mg, UNK
     Route: 048
     Dates: start: 20090513
  5. ALPRAZOLAM [Concomitant]
     Dosage: 0.25 mg, prn
     Route: 048
     Dates: start: 200905
  6. LIPITOR [Concomitant]
     Dosage: 20 mg, UNK
     Route: 048
  7. DIFLUCAN [Concomitant]
     Dosage: 100 mg, UNK
     Route: 048

REACTIONS (1)
  - Pulmonary embolism [Unknown]
